FAERS Safety Report 6091741-1 (Version None)
Quarter: 2009Q1

REPORT INFORMATION
  Report Type: 
  Country: None (occurrence: None)
  Receive Date: 20090225
  Receipt Date: 20080505
  Transmission Date: 20090719
  Serious: No
  Sender: FDA-Public Use
  Company Number: A0727313A

PATIENT

DRUGS (1)
  1. VALTREX [Suspect]
     Indication: DRUG USE FOR UNKNOWN INDICATION
     Route: 048

REACTIONS (5)
  - CHILLS [None]
  - DRY MOUTH [None]
  - EYE PRURITUS [None]
  - NASOPHARYNGITIS [None]
  - OROPHARYNGEAL PAIN [None]
